FAERS Safety Report 19936052 (Version 1)
Quarter: 2021Q4

REPORT INFORMATION
  Report Type: Report from Study
  Country: US (occurrence: US)
  Receive Date: 20211008
  Receipt Date: 20211008
  Transmission Date: 20220303
  Serious: Yes (Hospitalization)
  Sender: FDA-Public Use
  Company Number: US-GILEAD-2021-0552053

PATIENT
  Sex: Male

DRUGS (2)
  1. IDELALISIB [Suspect]
     Active Substance: IDELALISIB
     Indication: Chronic lymphocytic leukaemia
     Dosage: 150 MG, BID
     Route: 048
     Dates: start: 20210325
  2. RITUXAN [Concomitant]
     Active Substance: RITUXIMAB

REACTIONS (2)
  - Renal disorder [Unknown]
  - Headache [Not Recovered/Not Resolved]
